FAERS Safety Report 16227097 (Version 1)
Quarter: 2019Q2

REPORT INFORMATION
  Report Type: Spontaneous
  Country: TR (occurrence: TR)
  Receive Date: 20190423
  Receipt Date: 20190423
  Transmission Date: 20190711
  Serious: Yes (Other)
  Sender: FDA-Public Use
  Company Number: TR-SUN PHARMACEUTICAL INDUSTRIES LTD-2019RR-206136

PATIENT
  Age: 56 Year
  Sex: Female

DRUGS (1)
  1. ANASTROZOLE. [Suspect]
     Active Substance: ANASTROZOLE
     Indication: PROPHYLAXIS
     Dosage: 1 MILLIGRAM, DAILY, FOR MORE THAN 2 YEARS
     Route: 065

REACTIONS (1)
  - Vitreous adhesions [Not Recovered/Not Resolved]
